FAERS Safety Report 5428782-0 (Version None)
Quarter: 2007Q3

REPORT INFORMATION
  Report Type: 
  Country: None (occurrence: None)
  Receive Date: 20070829
  Receipt Date: 20070821
  Transmission Date: 20080115
  Serious: Yes (Other)
  Sender: FDA-Public Use
  Company Number: PHEH2007US04942

PATIENT
  Age: 68 Year
  Sex: Female
  Weight: 104.31 kg

DRUGS (8)
  1. ZELNORM [Suspect]
     Indication: IRRITABLE BOWEL SYNDROME
     Dosage: 6 MG, BID
     Route: 048
     Dates: start: 20060823, end: 20070101
  2. OMEPRAZOLE [Concomitant]
     Dosage: 40MG QD
  3. LANOXIN [Concomitant]
     Dosage: .375 QD
  4. WARFARIN [Concomitant]
     Dosage: UNK QD
  5. ACEBUTOLOL [Concomitant]
  6. LIPITOR [Concomitant]
     Dosage: 40 QD
  7. THYROID TAB [Concomitant]
  8. FLUOXETINE [Concomitant]
     Dosage: 20MG QD

REACTIONS (3)
  - CHEST PAIN [None]
  - HYPERHIDROSIS [None]
  - PALPITATIONS [None]
